FAERS Safety Report 9535448 (Version 2)
Quarter: 2017Q1

REPORT INFORMATION
  Report Type: Spontaneous
  Country: NO (occurrence: NO)
  Receive Date: 20130918
  Receipt Date: 20170214
  Transmission Date: 20170429
  Serious: Yes (Death)
  Sender: FDA-Public Use
  Company Number: NO-PFIZER INC-2013264813

PATIENT
  Age: 83 Year
  Sex: Female

DRUGS (3)
  1. DOXORUBICIN HCL [Suspect]
     Active Substance: DOXORUBICIN HYDROCHLORIDE
     Indication: SMALL CELL LUNG CANCER
     Dosage: DOSAGE ACCORDING TO PROTOCOL
     Route: 041
     Dates: start: 2013, end: 20130730
  2. VINCRISTINE [Suspect]
     Active Substance: VINCRISTINE
     Indication: SMALL CELL LUNG CANCER
     Dosage: DOSAGE ACCORDING TO PROTOCOL
     Route: 041
     Dates: start: 2013, end: 20130730
  3. CYCLOPHOSPHAMIDE. [Suspect]
     Active Substance: CYCLOPHOSPHAMIDE
     Indication: SMALL CELL LUNG CANCER
     Dosage: DOSAGE ACCORDING TO PROTOCOL
     Route: 041
     Dates: start: 2013, end: 20130730

REACTIONS (3)
  - Incorrect dose administered [Fatal]
  - Renal failure [Fatal]
  - Febrile neutropenia [Fatal]

NARRATIVE: CASE EVENT DATE: 20130730
